FAERS Safety Report 18008040 (Version 1)
Quarter: 2020Q3

REPORT INFORMATION
  Report Type: Spontaneous
  Country: AU (occurrence: AU)
  Receive Date: 20200710
  Receipt Date: 20200710
  Transmission Date: 20201103
  Serious: Yes (Hospitalization, Other)
  Sender: FDA-Public Use
  Company Number: AU-UCBSA-2020026258

PATIENT
  Age: 49 Year
  Sex: Female

DRUGS (21)
  1. QUETIAPINE. [Concomitant]
     Active Substance: QUETIAPINE
     Indication: ANTIDEPRESSANT THERAPY
     Dosage: 25 MILLIGRAM IN THE MORNING AND 50 MILLIGRAM IN THE NIGHT
  2. SUXAMETHONIUM [Concomitant]
     Active Substance: SUCCINYLCHOLINE
     Indication: PSYCHOTIC DISORDER
     Dosage: 80 MILLIGRAM
  3. CLOZAPINE. [Concomitant]
     Active Substance: CLOZAPINE
     Dosage: ICREASED TO 75 MILLIGRAM DAILY
  4. LEVETIRACETAM. [Suspect]
     Active Substance: LEVETIRACETAM
     Indication: PRODUCT USED FOR UNKNOWN INDICATION
     Dosage: 250 MILLIGRAM DAILY
  5. TAPENTADOL [Concomitant]
     Active Substance: TAPENTADOL
     Indication: PRODUCT USED FOR UNKNOWN INDICATION
  6. MELATONIN [Concomitant]
     Active Substance: MELATONIN
     Indication: PSYCHOTIC DISORDER
     Dosage: 2 MILLIGRAM, ONCE DAILY (QD)
  7. CITALOPRAM [Concomitant]
     Active Substance: CITALOPRAM HYDROBROMIDE
     Indication: MENTAL DISORDER
     Dosage: 20 MILLIGRAM DAILY
  8. LEVODOPA/CARBIDOPA [Concomitant]
     Active Substance: CARBIDOPA\LEVODOPA
     Dosage: 100/25 MG 4 TIMES A DAY
  9. SULFASALAZINE. [Concomitant]
     Active Substance: SULFASALAZINE
     Indication: PSYCHOTIC DISORDER
     Dosage: 1 GRAM, 2X/DAY (BID)
  10. LEVODOPA/CARBIDOPA [Concomitant]
     Active Substance: CARBIDOPA\LEVODOPA
     Indication: PSYCHOTIC DISORDER
     Dosage: 200/50 MG AT NIGHT
  11. LAMOTRIGINE. [Concomitant]
     Active Substance: LAMOTRIGINE
     Indication: PSYCHOTIC DISORDER
  12. PROPOFOL. [Concomitant]
     Active Substance: PROPOFOL
     Dosage: REDUCED TO 120 MILLIGRAM
  13. CLONAZEPAM. [Concomitant]
     Active Substance: CLONAZEPAM
     Indication: PSYCHOTIC DISORDER
     Dosage: 250 MICROGRAM, 3X/DAY (TID)
  14. PROPOFOL. [Concomitant]
     Active Substance: PROPOFOL
     Indication: PSYCHOTIC DISORDER
     Dosage: 150 MILLIGRAM
  15. CLOZAPINE. [Concomitant]
     Active Substance: CLOZAPINE
     Indication: PRODUCT USED FOR UNKNOWN INDICATION
     Dosage: UNK
  16. SERTRALINE [Concomitant]
     Active Substance: SERTRALINE HYDROCHLORIDE
     Indication: ANTIDEPRESSANT THERAPY
     Dosage: 150 MILLIGRAM DAILY
  17. VENLAFAXINE [Concomitant]
     Active Substance: VENLAFAXINE HYDROCHLORIDE
     Indication: PSYCHOTIC DISORDER
  18. ROTIGOTINE [Suspect]
     Active Substance: ROTIGOTINE
     Indication: PARKINSON^S DISEASE
     Dosage: UNK
  19. MORPHINE [Concomitant]
     Active Substance: MORPHINE
     Indication: PSYCHOTIC DISORDER
     Dosage: 2?4 MILLILITER AS REQUIRED
     Route: 048
  20. VENLAFAXINE [Concomitant]
     Active Substance: VENLAFAXINE HYDROCHLORIDE
     Dosage: INCREASED TO 150 MILLIGRAM DAILY
  21. METHADONE [Concomitant]
     Active Substance: METHADONE HYDROCHLORIDE
     Indication: PRODUCT USED FOR UNKNOWN INDICATION

REACTIONS (2)
  - Psychotic disorder [Recovering/Resolving]
  - Arthritis bacterial [Unknown]
